FAERS Safety Report 5294047-3 (Version None)
Quarter: 2007Q2

REPORT INFORMATION
  Report Type: 
  Country: None (occurrence: None)
  Receive Date: 20070404
  Receipt Date: 20070326
  Transmission Date: 20071010
  Serious: Yes (Life-Threatening, Hospitalization)
  Sender: FDA-Public Use
  Company Number: 238902

PATIENT
  Age: 72 Year
  Sex: Female

DRUGS (1)
  1. RITUXAN [Suspect]
     Indication: PEMPHIGOID

REACTIONS (5)
  - DIALYSIS [None]
  - OBSTRUCTIVE AIRWAYS DISORDER [None]
  - PERIORBITAL OEDEMA [None]
  - RENAL FAILURE [None]
  - STEVENS-JOHNSON SYNDROME [None]
